FAERS Safety Report 11284694 (Version 3)
Quarter: 2015Q4

REPORT INFORMATION
  Report Type: Report from Study
  Country: US (occurrence: US)
  Receive Date: 20150720
  Receipt Date: 20151230
  Transmission Date: 20160304
  Serious: No
  Sender: FDA-Public Use
  Company Number: US-AEGERION PHARMACEUTICAL INC.-AEGR001408

PATIENT

DRUGS (1)
  1. JUXTAPID [Suspect]
     Active Substance: LOMITAPIDE MESYLATE
     Indication: TYPE IIA HYPERLIPIDAEMIA
     Dosage: 5 MG, QD
     Route: 048
     Dates: start: 20150507

REACTIONS (13)
  - Blood glucose increased [Not Recovered/Not Resolved]
  - Gastrointestinal sounds abnormal [Not Recovered/Not Resolved]
  - Gastrointestinal disorder [Recovered/Resolved]
  - Weight decreased [Unknown]
  - Therapeutic response unexpected [Not Recovered/Not Resolved]
  - Food poisoning [Recovered/Resolved]
  - Nocturia [Not Recovered/Not Resolved]
  - Drug dose omission [Recovered/Resolved]
  - Insomnia [Not Recovered/Not Resolved]
  - Blood glucose decreased [Recovered/Resolved]
  - Dysgeusia [Not Recovered/Not Resolved]
  - Diarrhoea [Recovered/Resolved]
  - Headache [Not Recovered/Not Resolved]

NARRATIVE: CASE EVENT DATE: 201505
